FAERS Safety Report 25712565 (Version 1)
Quarter: 2025Q3

REPORT INFORMATION
  Report Type: Spontaneous
  Country: US (occurrence: US)
  Receive Date: 20250821
  Receipt Date: 20250821
  Transmission Date: 20251020
  Serious: No
  Sender: ALEXION PHARMACEUTICALS
  Company Number: US-ASTRAZENECA-202508USA013464US

PATIENT
  Age: 87 Year
  Sex: Female
  Weight: 165.8 kg

DRUGS (22)
  1. FARXIGA [Suspect]
     Active Substance: DAPAGLIFLOZIN PROPANEDIOL
     Route: 065
  2. TYVASO [Suspect]
     Active Substance: TREPROSTINIL
     Indication: Pulmonary arterial hypertension
     Dosage: 64 ?G (32 ?G + 32 ?G)
     Dates: start: 2024, end: 2024
  3. TYVASO [Suspect]
     Active Substance: TREPROSTINIL
     Dosage: 64 MICROGRAM, QID
     Dates: start: 2024, end: 2024
  4. TYVASO [Suspect]
     Active Substance: TREPROSTINIL
     Dosage: 80 ?G (64 ?G+16 ?G)
     Dates: start: 2024
  5. TYVASO [Suspect]
     Active Substance: TREPROSTINIL
     Dosage: 64 MICROGRAM, QID
  6. TYVASO [Suspect]
     Active Substance: TREPROSTINIL
     Dosage: 16 MICROGRAM, QID
  7. TYVASO [Suspect]
     Active Substance: TREPROSTINIL
     Dosage: 64 MICROGRAM, QID
  8. TYVASO [Suspect]
     Active Substance: TREPROSTINIL
     Dosage: 80 ?G (64 ?G+16 ?G), QID,
  9. TYVASO [Suspect]
     Active Substance: TREPROSTINIL
  10. CORICIDIN HBP CHEST CONGESTION AND COUGH [Concomitant]
     Active Substance: DEXTROMETHORPHAN HYDROBROMIDE\GUAIFENESIN
     Route: 065
  11. ACETAMINOPHEN [Concomitant]
     Active Substance: ACETAMINOPHEN
     Route: 065
  12. ZOLPIDEM TARTRATE [Concomitant]
     Active Substance: ZOLPIDEM TARTRATE
     Route: 065
  13. SILDENAFIL CITRATE [Concomitant]
     Active Substance: SILDENAFIL CITRATE
     Route: 065
  14. LEVOTHYROXINE SODIUM [Concomitant]
     Active Substance: LEVOTHYROXINE SODIUM
     Route: 065
  15. CLOPIDOGREL [Concomitant]
     Active Substance: CLOPIDOGREL BISULFATE
     Route: 065
  16. ROSUVASTATIN CALCIUM [Concomitant]
     Active Substance: ROSUVASTATIN CALCIUM
     Route: 065
  17. FLUTICASONE PROPIONATE AND SALMETEROL [Concomitant]
     Active Substance: FLUTICASONE PROPIONATE\SALMETEROL XINAFOATE
     Route: 065
  18. OXYGEN [Concomitant]
     Active Substance: OXYGEN
     Route: 065
  19. FUROSEMIDE [Concomitant]
     Active Substance: FUROSEMIDE
     Route: 065
  20. DIGOXIN [Concomitant]
     Active Substance: DIGOXIN
     Route: 065
  21. LEXAPRO [Concomitant]
     Active Substance: ESCITALOPRAM OXALATE
     Route: 065
  22. DIUREX WATER PILLS [Suspect]
     Active Substance: CAFFEINE\MAGNESIUM SALICYLATE
     Route: 065

REACTIONS (18)
  - Nausea [Unknown]
  - Cough [Unknown]
  - Throat irritation [Unknown]
  - Seasonal allergy [Unknown]
  - Decreased appetite [Unknown]
  - Ageusia [Unknown]
  - Dyspnoea [Unknown]
  - Asthenia [Unknown]
  - Depression [Unknown]
  - Weight decreased [Recovering/Resolving]
  - Feeling of body temperature change [Unknown]
  - Anxiety [Unknown]
  - Aphonia [Unknown]
  - Taste disorder [Unknown]
  - Dysphonia [Unknown]
  - Fatigue [Unknown]
  - Dizziness postural [Unknown]
  - Therapy non-responder [Unknown]
